FAERS Safety Report 18965432 (Version 1)
Quarter: 2021Q1

REPORT INFORMATION
  Report Type: Spontaneous
  Country: US (occurrence: US)
  Receive Date: 20210303
  Receipt Date: 20210303
  Transmission Date: 20210420
  Serious: No
  Sender: FDA-Public Use
  Company Number: US-MYLANLABS-2021M1010658

PATIENT
  Age: 57 Year
  Sex: Male

DRUGS (3)
  1. TELMISARTAN TABLETS, USP [Suspect]
     Active Substance: TELMISARTAN
     Indication: HYPERTENSION
     Dosage: 40 MILLIGRAM
  2. TELMISARTAN TABLETS, USP [Suspect]
     Active Substance: TELMISARTAN
     Dosage: 120 MILLIGRAM
     Dates: end: 2021
  3. TELMISARTAN TABLETS, USP [Suspect]
     Active Substance: TELMISARTAN
     Dosage: TWO 80 MG

REACTIONS (4)
  - Incorrect dose administered [Unknown]
  - Drug ineffective [Unknown]
  - Product storage error [Unknown]
  - Hypertension [Recovered/Resolved]

NARRATIVE: CASE EVENT DATE: 20201229
